FAERS Safety Report 8506318-5 (Version None)
Quarter: 2012Q3

REPORT INFORMATION
  Report Type: 
  Country: None (occurrence: None)
  Receive Date: 20120712
  Receipt Date: 20120703
  Transmission Date: 20120928
  Serious: Yes (Hospitalization, Other)
  Sender: FDA-Public Use
  Company Number: US-009507513-1106USA03367

PATIENT

DRUGS (6)
  1. FOSAMAX [Suspect]
     Dosage: 10 MG, QD
     Route: 048
     Dates: start: 20060628, end: 20070601
  2. FOSAMAX [Suspect]
     Dosage: 70 MG, QW
     Route: 048
     Dates: start: 20070705, end: 20080121
  3. FOSAMAX [Suspect]
     Dosage: 70 MG, QW
     Route: 048
     Dates: start: 20080220, end: 20090801
  4. FOSAMAX [Suspect]
     Indication: OSTEOPENIA
     Dosage: 70 MG, QW
     Route: 048
     Dates: start: 20040901, end: 20050904
  5. FOSAMAX [Suspect]
     Indication: OSTEOPOROSIS
     Route: 048
     Dates: start: 19960801
  6. FOSAMAX [Suspect]

REACTIONS (23)
  - HYPERTENSION [None]
  - BENIGN NEOPLASM [None]
  - RIB FRACTURE [None]
  - HYPERLIPIDAEMIA [None]
  - SPINAL DISORDER [None]
  - APPENDIX DISORDER [None]
  - ANXIETY [None]
  - PRURITUS [None]
  - ADVERSE DRUG REACTION [None]
  - PNEUMONIA ASPIRATION [None]
  - MIGRAINE [None]
  - UTERINE DISORDER [None]
  - INFECTION [None]
  - DEPRESSION [None]
  - FALL [None]
  - OSTEOPOROSIS [None]
  - ANAEMIA POSTOPERATIVE [None]
  - BRAIN ABSCESS [None]
  - FEMUR FRACTURE [None]
  - EXOSTOSIS [None]
  - PNEUMOTHORAX [None]
  - ARTHROPATHY [None]
  - WEIGHT INCREASED [None]
